FAERS Safety Report 18387618 (Version 8)
Quarter: 2021Q3

REPORT INFORMATION
  Report Type: Report from Study
  Country: US (occurrence: US)
  Receive Date: 20201015
  Receipt Date: 20210923
  Transmission Date: 20211014
  Serious: No
  Sender: FDA-Public Use
  Company Number: NVSC2020US270645

PATIENT
  Age: 77 Year
  Sex: Female

DRUGS (5)
  1. PIQRAY [Suspect]
     Active Substance: ALPELISIB
     Dosage: 150 MG, QD
     Route: 065
     Dates: start: 20210224
  2. FASLODEX [Concomitant]
     Active Substance: FULVESTRANT
     Indication: PRODUCT USED FOR UNKNOWN INDICATION
     Dosage: UNK
     Route: 065
  3. AFINITOR [Suspect]
     Active Substance: EVEROLIMUS
     Indication: BREAST CANCER FEMALE
     Dosage: 5 MG, QOD
     Route: 048
     Dates: start: 20200906
  4. AFINITOR [Suspect]
     Active Substance: EVEROLIMUS
     Dosage: 5MG QOD ALTERNATING WITH 10MG QOD
     Route: 048
     Dates: start: 20201003
  5. PIQRAY [Suspect]
     Active Substance: ALPELISIB
     Indication: BREAST CANCER FEMALE
     Dosage: UNK
     Route: 048

REACTIONS (11)
  - Weight decreased [Unknown]
  - Weight increased [Unknown]
  - Epistaxis [Unknown]
  - Decreased appetite [Unknown]
  - Fatigue [Unknown]
  - Blood glucose fluctuation [Unknown]
  - Blood glucose increased [Unknown]
  - Myalgia [Unknown]
  - Rash [Unknown]
  - Pruritus [Unknown]
  - Drug ineffective [Unknown]

NARRATIVE: CASE EVENT DATE: 20201004
